FAERS Safety Report 10120984 (Version 1)
Quarter: 2014Q2

REPORT INFORMATION
  Report Type: Report from Study
  Country: IT (occurrence: IT)
  Receive Date: 20140425
  Receipt Date: 20140425
  Transmission Date: 20141212
  Serious: Yes (Hospitalization)
  Sender: FDA-Public Use
  Company Number: IT-VIIV HEALTHCARE LIMITED-B0970356A

PATIENT
  Age: 57 Year
  Sex: Male
  Weight: 88.6 kg

DRUGS (5)
  1. MARAVIROC [Suspect]
     Indication: HIV INFECTION
     Dosage: 150MG TWICE PER DAY
     Route: 048
     Dates: start: 20080325
  2. PREZISTA [Concomitant]
     Dosage: 600MG TWICE PER DAY
     Dates: start: 20080325
  3. NORVIR [Concomitant]
     Dosage: 100MG TWICE PER DAY
     Dates: start: 20080325
  4. COMBIVIR [Concomitant]
     Dosage: 1TAB TWICE PER DAY
     Dates: start: 20080325
  5. NORVASC [Concomitant]
     Indication: HYPERTENSION
     Route: 048
     Dates: start: 20100601

REACTIONS (1)
  - Papillary thyroid cancer [Recovering/Resolving]
